FAERS Safety Report 5968187-7 (Version None)
Quarter: 2008Q4

REPORT INFORMATION
  Report Type: 
  Country: None (occurrence: None)
  Receive Date: 20081126
  Receipt Date: 20081117
  Transmission Date: 20090506
  Serious: Yes (Life-Threatening, Hospitalization)
  Sender: FDA-Public Use
  Company Number: FR-WYE-H06957108

PATIENT
  Sex: Female

DRUGS (8)
  1. CORDARONE [Suspect]
     Indication: ATRIAL FIBRILLATION
     Route: 048
     Dates: start: 20080601, end: 20080927
  2. CORDARONE [Interacting]
     Route: 048
     Dates: start: 20080930
  3. CORTANCYL [Concomitant]
     Indication: MUSCULOSKELETAL PAIN
     Route: 048
  4. SINTROM [Concomitant]
     Indication: ATRIAL FIBRILLATION
     Route: 048
     Dates: start: 20080601, end: 20080927
  5. SINTROM [Concomitant]
     Route: 048
     Dates: start: 20080101
  6. DIFFU K [Concomitant]
     Indication: HYPOKALAEMIA
     Route: 048
     Dates: start: 20080601, end: 20080927
  7. LASIX [Interacting]
     Indication: HYPERTENSION
     Route: 048
     Dates: start: 20080601, end: 20080927
  8. ANAFRANIL [Interacting]
     Route: 048

REACTIONS (5)
  - BRADYCARDIA [None]
  - DRUG EFFECT DECREASED [None]
  - DRUG INTERACTION [None]
  - ELECTROCARDIOGRAM QT PROLONGED [None]
  - TORSADE DE POINTES [None]
